FAERS Safety Report 9547803 (Version 1)
Quarter: 2013Q3

REPORT INFORMATION
  Report Type: Spontaneous
  Country: US (occurrence: None)
  Receive Date: 20130702
  Receipt Date: 20130702
  Transmission Date: 20140515
  Serious: Yes (Life-Threatening, Hospitalization)
  Sender: FDA-Public Use
  Company Number: 2013-01240

PATIENT
  Age: 14 Year
  Sex: Female

DRUGS (2)
  1. LAMOTRIGINE [Suspect]
     Indication: BIPOLAR DISORDER
  2. BUPROPION [Suspect]
     Indication: BIPOLAR DISORDER

REACTIONS (3)
  - Cardiac arrest [None]
  - Respiratory failure [None]
  - Drug reaction with eosinophilia and systemic symptoms [None]
